FAERS Safety Report 7149484-9 (Version None)
Quarter: 2010Q4

REPORT INFORMATION
  Report Type: 
  Country: None (occurrence: None)
  Receive Date: 20101209
  Receipt Date: 20101202
  Transmission Date: 20110411
  Serious: Yes (Other)
  Sender: FDA-Public Use
  Company Number: US-US-EMD SERONO, INC.-233113J09USA

PATIENT
  Sex: Female
  Weight: 93 kg

DRUGS (3)
  1. REBIF [Suspect]
     Indication: MULTIPLE SCLEROSIS
     Route: 065
     Dates: start: 20090831, end: 20091103
  2. REBIF [Suspect]
     Route: 058
     Dates: start: 20091103, end: 20100101
  3. TOPAMAX [Concomitant]
     Indication: MIGRAINE
     Route: 065

REACTIONS (2)
  - INJECTION SITE PAIN [None]
  - THYROID NEOPLASM [None]
